FAERS Safety Report 6653246-6 (Version None)
Quarter: 2010Q1

REPORT INFORMATION
  Report Type: 
  Country: None (occurrence: None)
  Receive Date: 20100326
  Receipt Date: 20100316
  Transmission Date: 20100710
  Serious: Yes (Hospitalization)
  Sender: FDA-Public Use
  Company Number: FR-BRISTOL-MYERS SQUIBB COMPANY-15027634

PATIENT
  Age: 67 Year
  Sex: Female

DRUGS (3)
  1. CARBIDOPA + LEVODOPA CR TABS 50/200MG [Suspect]
     Indication: PARKINSON'S DISEASE
     Dosage: 1DF-50-200MG
     Route: 048
     Dates: start: 20070509, end: 20070512
  2. SEROPRAM [Suspect]
     Indication: DEPRESSION
     Dosage: TABS
     Route: 048
     Dates: start: 20070509, end: 20070512
  3. REQUIP [Concomitant]

REACTIONS (1)
  - ANGLE CLOSURE GLAUCOMA [None]
